FAERS Safety Report 4748214-5 (Version None)
Quarter: 2005Q3

REPORT INFORMATION
  Report Type: 
  Country: None (occurrence: None)
  Receive Date: 20050818
  Receipt Date: 20050815
  Transmission Date: 20060218
  Serious: Yes (Hospitalization)
  Sender: FDA-Public Use
  Company Number: US-BRISTOL-MYERS SQUIBB COMPANY-13078142

PATIENT
  Age: 78 Year
  Sex: Male
  Weight: 88 kg

DRUGS (8)
  1. GLUCOPHAGE [Suspect]
     Indication: DIABETES MELLITUS
     Dates: end: 20050804
  2. ENALAPRIL [Concomitant]
  3. COREG [Concomitant]
  4. LIPITOR [Concomitant]
  5. ASPIRIN [Concomitant]
  6. GLYBURIDE [Concomitant]
  7. PROSCAR [Concomitant]
  8. PRECOSE [Concomitant]

REACTIONS (4)
  - HYPOGLYCAEMIA [None]
  - MOUTH HAEMORRHAGE [None]
  - NIGHT SWEATS [None]
  - WEIGHT DECREASED [None]
